FAERS Safety Report 15988760 (Version 1)
Quarter: 2019Q1

REPORT INFORMATION
  Report Type: Spontaneous
  Country: FR (occurrence: FR)
  Receive Date: 20190221
  Receipt Date: 20190221
  Transmission Date: 20190418
  Serious: Yes (Other)
  Sender: FDA-Public Use
  Company Number: FR-SUN PHARMACEUTICAL INDUSTRIES LTD-2019RR-199800

PATIENT
  Sex: Female

DRUGS (4)
  1. OXAZEPAM AYERST 50 MG, COMPRIME SECABLE [Suspect]
     Active Substance: OXAZEPAM
     Indication: PRODUCT USED FOR UNKNOWN INDICATION
     Dosage: NON RENSEIGNEE ()
     Route: 065
  2. ALIMEMAZINE [Suspect]
     Active Substance: TRIMEPRAZINE
     Indication: PRODUCT USED FOR UNKNOWN INDICATION
     Dosage: NON RENSEIGNE (5MG) ()
     Route: 065
  3. LEVOMEPROMAZINE [Suspect]
     Active Substance: LEVOMEPROMAZINE
     Indication: PRODUCT USED FOR UNKNOWN INDICATION
     Dosage: NON RENSEIGNEE (25MG) ()
     Route: 065
  4. MIRTAZAPINE. [Suspect]
     Active Substance: MIRTAZAPINE
     Indication: PRODUCT USED FOR UNKNOWN INDICATION
     Dosage: NON RENSEIGNE (15 MG) ()
     Route: 065

REACTIONS (3)
  - Drug dependence [Not Recovered/Not Resolved]
  - Prescription form tampering [Not Recovered/Not Resolved]
  - Drug abuse [Not Recovered/Not Resolved]
